FAERS Safety Report 4284477-0 (Version None)
Quarter: 2004Q1

REPORT INFORMATION
  Report Type: 
  Country: None (occurrence: None)
  Receive Date: 20040130
  Receipt Date: 20040130
  Transmission Date: 20041129
  Serious: Yes (Life-Threatening, Hospitalization)
  Sender: FDA-Public Use
  Company Number: None

PATIENT
  Age: 36 Year
  Sex: Male
  Weight: 104.3273 kg

DRUGS (1)
  1. ENBREL [Suspect]
     Indication: ARTHRITIS
     Dosage: 25 MG SC TWICE WEEKLY
     Route: 058
     Dates: start: 20031001

REACTIONS (2)
  - SEPSIS [None]
  - SINUSITIS [None]
